FAERS Safety Report 9907240 (Version 2)
Quarter: 2014Q1

REPORT INFORMATION
  Report Type: Spontaneous
  Country: US (occurrence: US)
  Receive Date: 20140218
  Receipt Date: 20140218
  Transmission Date: 20141002
  Serious: Yes (Other)
  Sender: FDA-Public Use
  Company Number: US-CELGENEUS-163-21880-13125310

PATIENT
  Age: 45 Year
  Sex: Male
  Weight: 79.4 kg

DRUGS (10)
  1. REVLIMID [Suspect]
     Indication: PLASMA CELL MYELOMA
     Dosage: 25 MILLIGRAM
     Route: 048
     Dates: start: 20131026
  2. DECADRON [Suspect]
     Indication: PLASMA CELL MYELOMA
     Route: 048
     Dates: start: 20131029
  3. LORTAB [Concomitant]
     Indication: PAIN
     Route: 048
  4. PROMETHAZINE [Concomitant]
     Indication: NAUSEA
     Route: 048
  5. PROMETHAZINE [Concomitant]
     Indication: VOMITING
  6. ONDANSETRON [Concomitant]
     Indication: NAUSEA
     Route: 048
  7. ONDANSETRON [Concomitant]
     Indication: VOMITING
  8. OMEPRAZOLE [Concomitant]
     Indication: PRODUCT USED FOR UNKNOWN INDICATION
     Route: 048
  9. ALBUTEROL [Concomitant]
     Indication: PRODUCT USED FOR UNKNOWN INDICATION
     Route: 065
  10. VELCADE [Concomitant]
     Indication: PLASMA CELL MYELOMA
     Route: 065
     Dates: start: 20131029

REACTIONS (2)
  - Blood glucose increased [Recovering/Resolving]
  - Dry skin [Unknown]
